FAERS Safety Report 9919373 (Version 2)
Quarter: 2014Q1

REPORT INFORMATION
  Report Type: Spontaneous
  Country: GB (occurrence: GB)
  Receive Date: 20140224
  Receipt Date: 20140307
  Transmission Date: 20141002
  Serious: Yes (Other)
  Sender: FDA-Public Use
  Company Number: GB-ASTRAZENECA-2014SE11414

PATIENT
  Sex: Female

DRUGS (10)
  1. ZOMIG [Suspect]
     Indication: MIGRAINE
     Route: 048
  2. OMEPRAZOLE [Interacting]
     Route: 048
  3. DIAZEPAM [Interacting]
     Route: 065
  4. PARACETAMOL [Interacting]
     Route: 065
  5. IBUPROFEN (NON-AZ PRODUCT) [Interacting]
     Route: 065
  6. LORAZEPAM [Interacting]
     Route: 065
  7. PREDNISOLONE [Interacting]
     Route: 065
  8. DEXAMETHASONE [Interacting]
     Route: 065
  9. METOCLOPRAMIDE [Interacting]
     Route: 065
  10. MULTIVITAMINS [Interacting]
     Route: 065

REACTIONS (2)
  - Breast cancer [Unknown]
  - Drug interaction [Unknown]
